FAERS Safety Report 4852363-0 (Version None)
Quarter: 2005Q4

REPORT INFORMATION
  Report Type: 
  Country: None (occurrence: None)
  Receive Date: 20051123
  Receipt Date: 20050202
  Transmission Date: 20060501
  Serious: Yes (Hospitalization, Other)
  Sender: FDA-Public Use
  Company Number: US-JNJFOC-20040704454

PATIENT
  Age: 73 Year
  Sex: Female
  Weight: 36.2878 kg

DRUGS (4)
  1. LEVAQUIN [Suspect]
     Indication: PNEUMONIA
     Dosage: INTRAVENOUS
     Route: 042
     Dates: start: 20040601
  2. LEVAQUIN [Suspect]
     Indication: PNEUMONIA
     Dosage: ORAL
     Route: 048
     Dates: start: 20040601, end: 20040625
  3. SYNTHROID [Concomitant]
  4. BLOOD PRESSURE MEDICINE (ANTIHYPERTENSIVES) [Concomitant]

REACTIONS (1)
  - TENDON RUPTURE [None]
